FAERS Safety Report 19645135 (Version 1)
Quarter: 2021Q3

REPORT INFORMATION
  Report Type: Spontaneous
  Country: CA (occurrence: CA)
  Receive Date: 20210802
  Receipt Date: 20210802
  Transmission Date: 20211014
  Serious: Yes (Hospitalization)
  Sender: FDA-Public Use
  Company Number: CA-B.I. PHARMACEUTICALS,INC./RIDGEFIELD-2021-BI-118559

PATIENT
  Age: 93 Year
  Sex: Male

DRUGS (14)
  1. MICARDIS [Suspect]
     Active Substance: TELMISARTAN
     Indication: MYOCARDIAL INFARCTION
  2. APO?LORAZEPAM [Suspect]
     Active Substance: LORAZEPAM
     Indication: INSOMNIA
  3. APO?LORAZEPAM [Suspect]
     Active Substance: LORAZEPAM
  4. APO?METOPROLOL [Suspect]
     Active Substance: METOPROLOL
     Indication: CORONARY ARTERY DISEASE
  5. PREDNISONE. [Concomitant]
     Active Substance: PREDNISONE
     Indication: PEMPHIGOID
  6. LOPERAMIDE [Concomitant]
     Active Substance: LOPERAMIDE
     Indication: DIARRHOEA
  7. ESCITALOPRAM [Suspect]
     Active Substance: ESCITALOPRAM OXALATE
  8. APO?METOPROLOL [Suspect]
     Active Substance: METOPROLOL
     Indication: MYOCARDIAL INFARCTION
  9. ESCITALOPRAM [Suspect]
     Active Substance: ESCITALOPRAM OXALATE
     Indication: DEPRESSION
  10. TAMSULOSIN CR [Concomitant]
     Active Substance: TAMSULOSIN
     Indication: NOCTURIA
  11. MICARDIS [Suspect]
     Active Substance: TELMISARTAN
     Indication: CORONARY ARTERY DISEASE
  12. MICARDIS [Suspect]
     Active Substance: TELMISARTAN
  13. PANTOPRAZOLE [Suspect]
     Active Substance: PANTOPRAZOLE
     Indication: GASTROINTESTINAL HAEMORRHAGE
  14. APO?LORAZEPAM [Suspect]
     Active Substance: LORAZEPAM

REACTIONS (14)
  - Anal incontinence [Recovered/Resolved]
  - Hyponatraemia [Recovered/Resolved]
  - Balance disorder [Recovered/Resolved]
  - Fatigue [Recovered/Resolved]
  - Sedation complication [Recovered/Resolved]
  - Dizziness [Recovered/Resolved]
  - Skin laceration [Recovered/Resolved]
  - Depressed mood [Recovered/Resolved]
  - Diarrhoea [Recovered/Resolved]
  - Vitamin B12 deficiency [Recovered/Resolved]
  - Somnolence [Recovered/Resolved]
  - Fall [Recovered/Resolved]
  - Orthostatic hypotension [Recovered/Resolved]
  - Vitamin D deficiency [Recovered/Resolved]
